FAERS Safety Report 8525650-2 (Version None)
Quarter: 2012Q3

REPORT INFORMATION
  Report Type: 
  Country: None (occurrence: None)
  Receive Date: 20120720
  Receipt Date: 20120709
  Transmission Date: 20120928
  Serious: Yes (Other)
  Sender: FDA-Public Use
  Company Number: FR-009507513-1207FRA000904

PATIENT

DRUGS (9)
  1. OXALIPLATIN [Suspect]
     Indication: LYMPHOMA
     Dosage: UNK
     Route: 042
     Dates: end: 20101210
  2. CYTARABINE [Suspect]
     Indication: LYMPHOMA
     Dosage: UNK
     Route: 042
     Dates: end: 20101210
  3. POLARAMINE [Suspect]
     Indication: PRODUCT USED FOR UNKNOWN INDICATION
     Dosage: UNK
     Route: 048
     Dates: end: 20110415
  4. MABTHERA [Suspect]
     Indication: LYMPHOMA
     Dosage: UNK
     Route: 042
     Dates: end: 20110415
  5. PLITICAN [Suspect]
     Indication: PRODUCT USED FOR UNKNOWN INDICATION
     Dosage: UNK
     Route: 042
     Dates: end: 20101210
  6. SINGULAIR [Suspect]
     Indication: PRODUCT USED FOR UNKNOWN INDICATION
     Dosage: UNK
  7. ZOFRAN [Suspect]
     Indication: PRODUCT USED FOR UNKNOWN INDICATION
     Dosage: UNK
     Route: 048
     Dates: end: 20101210
  8. VFEND [Suspect]
     Indication: LUNG DISORDER
     Dosage: 50 MG, BID
     Route: 048
     Dates: start: 20111101
  9. METHYLPREDNISOLONE [Suspect]
     Indication: PRODUCT USED FOR UNKNOWN INDICATION
     Dosage: UNK
     Route: 042
     Dates: end: 20110415

REACTIONS (3)
  - GYNAECOMASTIA [None]
  - HOT FLUSH [None]
  - HYPOGONADISM [None]
